FAERS Safety Report 5501636-7 (Version None)
Quarter: 2007Q4

REPORT INFORMATION
  Report Type: 
  Country: None (occurrence: None)
  Receive Date: 20071030
  Receipt Date: 20071018
  Transmission Date: 20080405
  Serious: Yes (Other)
  Sender: FDA-Public Use
  Company Number: CA-ELI_LILLY_AND_COMPANY-CA200710005283

PATIENT
  Age: 65 Year
  Sex: Male

DRUGS (6)
  1. FORTEO [Suspect]
     Indication: OSTEOPOROSIS
     Dosage: 20 UG, DAILY (1/D)
     Route: 058
     Dates: start: 20061017
  2. BRICANYL [Concomitant]
  3. SPIRIVA [Concomitant]
  4. DICETEL [Concomitant]
  5. GLUCOSAMINE [Concomitant]
  6. CALCIUM [Concomitant]

REACTIONS (2)
  - AORTIC ANEURYSM [None]
  - NEPHROLITHIASIS [None]
